FAERS Safety Report 7272358-X (Version None)
Quarter: 2011Q1

REPORT INFORMATION
  Report Type: 
  Country: None (occurrence: None)
  Receive Date: 20110203
  Receipt Date: 20110201
  Transmission Date: 20110831
  Serious: Yes (Life-Threatening, Other)
  Sender: FDA-Public Use
  Company Number: PHHO2011IT01077

PATIENT
  Sex: Male
  Weight: 98 kg

DRUGS (3)
  1. NEORAL [Suspect]
     Indication: HEART TRANSPLANT
     Dosage: 300 MG, BID
     Route: 048
     Dates: start: 20110110
  2. MYCOPHENOLATE MOFETIL [Suspect]
     Indication: HEART TRANSPLANT
     Dosage: 3000 MG, BID
     Route: 048
     Dates: start: 20110110, end: 20110114
  3. DELTACORTENE [Suspect]
     Indication: HEART TRANSPLANT
     Dosage: 20 MG, BID
     Route: 048
     Dates: start: 20110105

REACTIONS (8)
  - DYSPNOEA [None]
  - PNEUMONIA [None]
  - PERICARDIAL EFFUSION [None]
  - COUGH [None]
  - PARACENTESIS [None]
  - RENAL FAILURE [None]
  - PERICARDIAL DRAINAGE [None]
  - ASCITES [None]
